FAERS Safety Report 15143441 (Version 3)
Quarter: 2018Q3

REPORT INFORMATION
  Report Type: Spontaneous
  Country: JP (occurrence: JP)
  Receive Date: 20180713
  Receipt Date: 20180720
  Transmission Date: 20181010
  Serious: Yes (Life-Threatening, Hospitalization)
  Sender: FDA-Public Use
  Company Number: JP-BAYER-2018-128131

PATIENT
  Age: 85 Year
  Sex: Male

DRUGS (10)
  1. AMBROXOL [Concomitant]
     Active Substance: AMBROXOL
     Dosage: 15 MG, TID
  2. ADALAT?CR 20 MG [Concomitant]
     Dosage: DAILY DOSE 2 DF
     Route: 048
  3. CARVEDILOL. [Concomitant]
     Active Substance: CARVEDILOL
     Dosage: 10 MG, BID
  4. CARBOCISTEINE [Concomitant]
     Active Substance: CARBOCYSTEINE
     Dosage: 500 MG, TID
  5. BAYASPIRIN 100 MG [Concomitant]
     Active Substance: ASPIRIN
     Dosage: 1 DF, QD
  6. FUROSEMIDE. [Concomitant]
     Active Substance: FUROSEMIDE
     Dosage: 0.5 DF, QD
  7. CODEIN PHOSPHAS [Concomitant]
     Dosage: 20 G, PRN
  8. NEXAVAR [Suspect]
     Active Substance: SORAFENIB
     Indication: NEOPLASM MALIGNANT
     Dosage: 200 MG, BID
     Route: 048
     Dates: start: 20180528
  9. LAC?B [Concomitant]
     Active Substance: BIFIDOBACTERIUM SPP.
     Dosage: 3 G, TID
  10. ROSUVASTATIN. [Concomitant]
     Active Substance: ROSUVASTATIN
     Dosage: DAILY DOSE 2.5 MG

REACTIONS (4)
  - Blood pressure increased [Recovered/Resolved]
  - Chest pain [Recovered/Resolved]
  - Myocardial ischaemia [Recovered/Resolved]
  - Chest discomfort [Recovered/Resolved]

NARRATIVE: CASE EVENT DATE: 201806
